FAERS Safety Report 10777103 (Version 6)
Quarter: 2018Q4

REPORT INFORMATION
  Report Type: Spontaneous
  Country: US (occurrence: US)
  Receive Date: 20150209
  Receipt Date: 20181031
  Transmission Date: 20190204
  Serious: No
  Sender: FDA-Public Use
  Company Number: US-PFIZER INC-2015051295

PATIENT
  Age: 56 Year
  Sex: Female
  Weight: 68 kg

DRUGS (6)
  1. LYRICA [Suspect]
     Active Substance: PREGABALIN
     Indication: NEUROPATHY PERIPHERAL
     Dosage: 100 MG, 3X/DAY
     Dates: start: 2011, end: 2011
  2. VITAMIN D [Concomitant]
     Active Substance: CHOLECALCIFEROL
  3. CYMBALTA [Concomitant]
     Active Substance: DULOXETINE HYDROCHLORIDE
     Indication: MOOD ALTERED
     Dosage: 60 MG, DAILY
     Route: 048
  4. METOPROLOL. [Concomitant]
     Active Substance: METOPROLOL
     Indication: HYPERTENSION
     Dosage: 25 MG, DAILY (ONE HALF OF A 50MG TABLET DAILY BY MOUTH IN THE MORNING )
     Route: 048
  5. FISH OIL [Concomitant]
     Active Substance: FISH OIL
  6. LISINOPRIL. [Concomitant]
     Active Substance: LISINOPRIL
     Indication: HYPERTENSION
     Dosage: 10 MG, DAILY
     Route: 048

REACTIONS (3)
  - Loss of personal independence in daily activities [Unknown]
  - Gait disturbance [Unknown]
  - Body height decreased [Unknown]
